FAERS Safety Report 24692509 (Version 1)
Quarter: 2024Q4

REPORT INFORMATION
  Report Type: Spontaneous
  Country: US (occurrence: None)
  Receive Date: 20241203
  Receipt Date: 20241203
  Transmission Date: 20250114
  Serious: Yes (Hospitalization)
  Sender: Public
  Company Number: None

PATIENT
  Age: 86 Year
  Sex: Male
  Weight: 75 kg

DRUGS (1)
  1. APIXABAN [Suspect]
     Active Substance: APIXABAN
     Indication: Atrial fibrillation
     Dosage: 5.00 MG TWICE A DAY ORAL?
     Route: 048
     Dates: start: 20231206

REACTIONS (6)
  - Haematochezia [None]
  - Dizziness [None]
  - Therapy interrupted [None]
  - Haemoglobin decreased [None]
  - Abdominal pain upper [None]
  - Diverticulum intestinal [None]

NARRATIVE: CASE EVENT DATE: 20240802
